FAERS Safety Report 4768079-5 (Version None)
Quarter: 2005Q3

REPORT INFORMATION
  Report Type: 
  Country: None (occurrence: None)
  Receive Date: 20050912
  Receipt Date: 20050912
  Transmission Date: 20060218
  Serious: Yes (Other)
  Sender: FDA-Public Use
  Company Number: None

PATIENT
  Age: 27 Year
  Sex: Female
  Weight: 49.8957 kg

DRUGS (2)
  1. CYMBALTA [Suspect]
     Indication: ANXIETY
     Dosage: 30 MG   ONE DAY   PO;  60 MG   ONE DAY  PO
     Route: 048
  2. CYMBALTA [Suspect]
     Indication: DEPRESSION
     Dosage: 30 MG   ONE DAY   PO;  60 MG   ONE DAY  PO
     Route: 048

REACTIONS (13)
  - ANGER [None]
  - DIZZINESS [None]
  - DRUG WITHDRAWAL SYNDROME [None]
  - FEAR [None]
  - FEELING ABNORMAL [None]
  - HEADACHE [None]
  - HYPERSOMNIA [None]
  - HYPOAESTHESIA [None]
  - NAUSEA [None]
  - NIGHTMARE [None]
  - PAIN [None]
  - PARAESTHESIA [None]
  - STOMACH DISCOMFORT [None]
